FAERS Safety Report 14859224 (Version 1)
Quarter: 2018Q2

REPORT INFORMATION
  Report Type: Report from Study
  Country: US (occurrence: US)
  Receive Date: 20180508
  Receipt Date: 20180508
  Transmission Date: 20180711
  Serious: Yes (Death, Other)
  Sender: FDA-Public Use
  Company Number: US-CIPLA (EU) LIMITED-2018US17231

PATIENT

DRUGS (5)
  1. PEMBROLIZUMAB. [Suspect]
     Active Substance: PEMBROLIZUMAB
     Indication: ADENOCARCINOMA PANCREAS
     Dosage: 2 MG/KG, OVER 30 MIN EVERY 21 DAYS
     Route: 042
  2. PEMBROLIZUMAB. [Suspect]
     Active Substance: PEMBROLIZUMAB
     Dosage: UNK
  3. PACLITAXEL. [Suspect]
     Active Substance: PACLITAXEL
     Indication: ADENOCARCINOMA PANCREAS
     Dosage: 100 MG/M2, ON DAYS 1 AND 8 EVERY 21 DAYS
  4. GEMCITABINE [Suspect]
     Active Substance: GEMCITABINE\GEMCITABINE HYDROCHLORIDE
     Indication: ADENOCARCINOMA PANCREAS
     Dosage: 800 MG/M2, ON DAYS 1 AND 8 EVERY 21 DAYS
  5. DEXAMETHASONE. [Concomitant]
     Active Substance: DEXAMETHASONE
     Indication: PREMEDICATION
     Dosage: 12 MG, UNK
     Route: 042

REACTIONS (9)
  - Disease progression [Unknown]
  - Rash [Unknown]
  - Anaemia [Unknown]
  - Blood alkaline phosphatase increased [Unknown]
  - Death [Fatal]
  - Vomiting [Unknown]
  - Cough [Unknown]
  - Nausea [Unknown]
  - Thrombocytopenia [Unknown]
